FAERS Safety Report 24547892 (Version 2)
Quarter: 2025Q1

REPORT INFORMATION
  Report Type: Spontaneous
  Country: JP (occurrence: JP)
  Receive Date: 20241025
  Receipt Date: 20250103
  Transmission Date: 20250409
  Serious: Yes (Other)
  Sender: JOHNSON AND JOHNSON
  Company Number: JP-MTPC-MTPC2024-0021761

PATIENT
  Age: 5 Decade
  Sex: Female

DRUGS (1)
  1. REMICADE [Suspect]
     Active Substance: INFLIXIMAB
     Indication: Behcet^s syndrome
     Route: 041

REACTIONS (2)
  - Behcet^s syndrome [Unknown]
  - Nail candida [Recovered/Resolved]
